FAERS Safety Report 16947092 (Version 1)
Quarter: 2019Q4

REPORT INFORMATION
  Report Type: Report from Study
  Country: FR (occurrence: FR)
  Receive Date: 20191022
  Receipt Date: 20191022
  Transmission Date: 20200122
  Serious: Yes (Hospitalization)
  Sender: FDA-Public Use
  Company Number: FR-GUERBET-FR-20191275

PATIENT
  Age: 71 Year
  Sex: Female

DRUGS (1)
  1. DOTAREM [Suspect]
     Active Substance: GADOTERATE MEGLUMINE
     Indication: MAGNETIC RESONANCE IMAGING
     Route: 042
     Dates: start: 20191009, end: 20191009

REACTIONS (8)
  - Defaecation disorder [Not Recovered/Not Resolved]
  - Hypothermia [Not Recovered/Not Resolved]
  - Erythema [Not Recovered/Not Resolved]
  - Tachycardia [Not Recovered/Not Resolved]
  - Type I hypersensitivity [Not Recovered/Not Resolved]
  - Laryngeal discomfort [Not Recovered/Not Resolved]
  - Nausea [Not Recovered/Not Resolved]
  - Diarrhoea [Not Recovered/Not Resolved]

NARRATIVE: CASE EVENT DATE: 20191009
